FAERS Safety Report 12929949 (Version 1)
Quarter: 2016Q4

REPORT INFORMATION
  Report Type: Report from Study
  Country: DK (occurrence: DK)
  Receive Date: 20161110
  Receipt Date: 20161110
  Transmission Date: 20170207
  Serious: Yes (Other)
  Sender: FDA-Public Use
  Company Number: DK-PFIZER INC-2015139585

PATIENT
  Age: 63 Year
  Sex: Male
  Weight: 103 kg

DRUGS (9)
  1. REMICADE [Suspect]
     Active Substance: INFLIXIMAB
     Indication: PSORIATIC ARTHROPATHY
     Dosage: 500/540 MG
     Route: 042
     Dates: start: 20131129, end: 20140103
  2. METHOTREXATE SODIUM. [Suspect]
     Active Substance: METHOTREXATE SODIUM
     Dosage: UNK; INTERMITTENTLY
     Route: 048
     Dates: start: 2008, end: 2012
  3. SIMPONI [Suspect]
     Active Substance: GOLIMUMAB
     Dosage: 50 MG, MONTHLY (30 DAYS)
     Route: 058
     Dates: start: 20150216, end: 20150216
  4. REMICADE [Suspect]
     Active Substance: INFLIXIMAB
     Dosage: UNK
  5. ENBREL [Suspect]
     Active Substance: ETANERCEPT
     Indication: PSORIATIC ARTHROPATHY
     Dosage: 50 MG, WEEKLY
     Route: 058
     Dates: start: 20140411, end: 20150223
  6. ENBREL [Suspect]
     Active Substance: ETANERCEPT
     Dosage: UNK
  7. ENBREL [Suspect]
     Active Substance: ETANERCEPT
     Dosage: UNK
  8. HUMIRA [Concomitant]
     Active Substance: ADALIMUMAB
     Indication: PSORIATIC ARTHROPATHY
     Dosage: 40 MG, 2X/WEEK
     Route: 058
     Dates: start: 20150216, end: 20150301
  9. SIMPONI [Suspect]
     Active Substance: GOLIMUMAB
     Indication: PSORIATIC ARTHROPATHY
     Dosage: 50 MG, MONTHLY (30 DAYS)
     Route: 058
     Dates: start: 20140220, end: 20140411

REACTIONS (2)
  - Haematuria [Unknown]
  - Bladder transitional cell carcinoma stage II [Recovered/Resolved with Sequelae]

NARRATIVE: CASE EVENT DATE: 201503
